FAERS Safety Report 7005345-7 (Version None)
Quarter: 2010Q3

REPORT INFORMATION
  Report Type: 
  Country: None (occurrence: None)
  Receive Date: 20100921
  Receipt Date: 20100903
  Transmission Date: 20110219
  Serious: Yes (Hospitalization, Other)
  Sender: FDA-Public Use
  Company Number: US-BAYER-200942178NA

PATIENT
  Age: 33 Year
  Sex: Female
  Weight: 54 kg

DRUGS (2)
  1. YAZ [Suspect]
     Indication: CONTRACEPTION
     Route: 048
     Dates: start: 20071004, end: 20071123
  2. IBUPROFEN [Concomitant]
     Indication: DEEP VEIN THROMBOSIS
     Dosage: WITH FOOD
     Route: 065
     Dates: start: 20071101

REACTIONS (2)
  - DEEP VEIN THROMBOSIS [None]
  - PAIN IN EXTREMITY [None]
